FAERS Safety Report 7551609-8 (Version None)
Quarter: 2011Q2

REPORT INFORMATION
  Report Type: 
  Country: None (occurrence: None)
  Receive Date: 20110616
  Receipt Date: 20110607
  Transmission Date: 20111010
  Serious: Yes (Hospitalization)
  Sender: FDA-Public Use
  Company Number: US-ASTRAZENECA-2011SE34726

PATIENT
  Age: 58 Year
  Sex: Male

DRUGS (1)
  1. VANDETANIB [Suspect]
     Indication: THYROID CANCER
     Dosage: FILM COATED TABLET
     Route: 048
     Dates: start: 20110603, end: 20110606

REACTIONS (1)
  - CONVULSION [None]
